FAERS Safety Report 9720514 (Version 1)
Quarter: 2013Q4

REPORT INFORMATION
  Report Type: Spontaneous
  Country: BR (occurrence: BR)
  Receive Date: 20131129
  Receipt Date: 20131129
  Transmission Date: 20140711
  Serious: Yes (Hospitalization, Other)
  Sender: FDA-Public Use
  Company Number: BR-ASTRAZENECA-2013SE86831

PATIENT
  Age: 624 Month
  Sex: Male
  Weight: 66 kg

DRUGS (4)
  1. ATACAND [Suspect]
     Indication: HYPERTENSION
     Route: 048
     Dates: start: 2006, end: 201311
  2. LIPITOR [Concomitant]
     Indication: HYPERCHOLESTEROLAEMIA
     Route: 048
     Dates: start: 2004
  3. SUSTRATE [Concomitant]
     Indication: DRESSLER^S SYNDROME
     Route: 048
     Dates: start: 2004
  4. SOMALGIN [Concomitant]
     Indication: ANTICOAGULANT THERAPY
     Route: 048
     Dates: start: 2004

REACTIONS (3)
  - Coronary artery disease [Recovered/Resolved]
  - Blood pressure increased [Recovered/Resolved]
  - Drug dose omission [Recovered/Resolved]
